FAERS Safety Report 9750539 (Version 1)
Quarter: 2013Q4

REPORT INFORMATION
  Report Type: Spontaneous
  Country: FR (occurrence: FR)
  Receive Date: 20131212
  Receipt Date: 20131212
  Transmission Date: 20140711
  Serious: Yes (Other)
  Sender: FDA-Public Use
  Company Number: FR-FRI-1000052098

PATIENT
  Age: 69 Year
  Sex: Female

DRUGS (1)
  1. MILNACIPRAN [Suspect]
     Dosage: 50 MG
     Route: 048
     Dates: start: 201301, end: 20130903

REACTIONS (2)
  - Telangiectasia [Recovered/Resolved]
  - Livedo reticularis [Recovered/Resolved]
